FAERS Safety Report 6662112-1 (Version None)
Quarter: 2010Q1

REPORT INFORMATION
  Report Type: 
  Country: None (occurrence: None)
  Receive Date: 20100329
  Receipt Date: 20100318
  Transmission Date: 20100710
  Serious: Yes (Death, Hospitalization)
  Sender: FDA-Public Use
  Company Number: 2009AC000075

PATIENT
  Age: 66 Year
  Sex: Female

DRUGS (59)
  1. DIGOXIN [Suspect]
     Dosage: 0.125 MG; QD; PO
     Route: 048
     Dates: start: 20060601, end: 20070826
  2. DIGOXIN [Suspect]
     Dosage: .125 MG; PO
     Route: 048
     Dates: start: 20060101, end: 20080101
  3. DIGOXIN [Suspect]
     Dosage: .125 MG; QD; PO
     Route: 048
     Dates: start: 20080729
  4. CALCIUM [Concomitant]
  5. FOSAMAX [Concomitant]
  6. ALBUTEROL [Concomitant]
  7. ASPIRIN [Concomitant]
  8. PRILOSEC [Concomitant]
  9. NITROGLYCERIN [Concomitant]
  10. VYTORIN [Concomitant]
  11. VITAMIN B-12 [Concomitant]
  12. ALDACTONE [Concomitant]
  13. COREG [Concomitant]
  14. MICRO-K [Concomitant]
  15. SYNTHROID [Concomitant]
  16. LASIX [Concomitant]
  17. LIBRAX [Concomitant]
  18. FISH OIL [Concomitant]
  19. METOPROLOL TARTRATE [Concomitant]
  20. SIMVASTATIN [Concomitant]
  21. BUMEX [Concomitant]
  22. FLORINEF [Concomitant]
  23. LOMOTIL [Concomitant]
  24. POTASSIUM [Concomitant]
  25. HYDROCHLOROTHIAZIDE [Concomitant]
  26. TOPROL-XL [Concomitant]
  27. PREMARIN [Concomitant]
  28. NEXIUM [Concomitant]
  29. ZOCOR [Concomitant]
  30. CALCIUM [Concomitant]
  31. METOPROLOL TARTRATE [Concomitant]
  32. PREDNISONE [Concomitant]
  33. LEVOTHYROXINE SODIUM [Concomitant]
  34. OMEPRAZOLE [Concomitant]
  35. ASPIRIN [Concomitant]
  36. FLUDROCORT [Concomitant]
  37. FUROSEMIDE [Concomitant]
  38. MUCINEX [Concomitant]
  39. DECONEX [Concomitant]
  40. LEVAQUIN [Concomitant]
  41. TUSSIONEX [Concomitant]
  42. BUMETADINE [Concomitant]
  43. SPIRONOLACTONE [Concomitant]
  44. CARVEDILOL [Concomitant]
  45. NITROGLYCERIN [Concomitant]
  46. PLAVIX [Concomitant]
  47. SKELAXIN [Concomitant]
  48. AZITHROMYCIN [Concomitant]
  49. MIDODRINE HYDROCHLORIDE [Concomitant]
  50. KLOR-CON [Concomitant]
  51. SERTRALINE HCL [Concomitant]
  52. ETODOLAC [Concomitant]
  53. MELOXICAM [Concomitant]
  54. CEFDINIR [Concomitant]
  55. COREG [Concomitant]
  56. TOPROL-XL [Concomitant]
  57. LASIX [Concomitant]
  58. TOPROL-XL [Concomitant]
  59. COREG [Concomitant]

REACTIONS (31)
  - ABDOMINAL DISTENSION [None]
  - ABDOMINAL PAIN [None]
  - ANGINA PECTORIS [None]
  - BLOOD PRESSURE SYSTOLIC INCREASED [None]
  - BRADYCARDIA [None]
  - CARDIAC FAILURE CONGESTIVE [None]
  - COUGH [None]
  - DIASTOLIC DYSFUNCTION [None]
  - DIZZINESS [None]
  - DYSPNOEA EXERTIONAL [None]
  - ECONOMIC PROBLEM [None]
  - FALL [None]
  - HAEMATOMA [None]
  - INTERMITTENT CLAUDICATION [None]
  - LEFT VENTRICULAR HYPERTROPHY [None]
  - LIMB INJURY [None]
  - LOSS OF CONSCIOUSNESS [None]
  - MULTIPLE INJURIES [None]
  - MUSCULOSKELETAL CHEST PAIN [None]
  - NAUSEA [None]
  - OEDEMA PERIPHERAL [None]
  - ORTHOSTATIC HYPOTENSION [None]
  - PRESYNCOPE [None]
  - PULMONARY CONGESTION [None]
  - PULMONARY HYPERTENSION [None]
  - RIGHT VENTRICULAR FAILURE [None]
  - SCAN MYOCARDIAL PERFUSION ABNORMAL [None]
  - SURGERY [None]
  - SYNCOPE [None]
  - THERAPEUTIC AGENT TOXICITY [None]
  - VERTIGO [None]
